FAERS Safety Report 24028888 (Version 1)
Quarter: 2024Q2

REPORT INFORMATION
  Report Type: Spontaneous
  Country: US (occurrence: US)
  Receive Date: 20240628
  Receipt Date: 20240628
  Transmission Date: 20240716
  Serious: Yes (Death, Hospitalization, Other)
  Sender: FDA-Public Use
  Company Number: US-009507513-2406USA007043

PATIENT
  Age: 72 Year
  Sex: Female

DRUGS (1)
  1. KEYTRUDA [Suspect]
     Active Substance: PEMBROLIZUMAB
     Indication: Lung adenocarcinoma
     Dosage: UNK

REACTIONS (6)
  - Multiple organ dysfunction syndrome [Fatal]
  - Colitis [Unknown]
  - Renal infarct [Unknown]
  - Cholangitis [Unknown]
  - Oesophagitis [Unknown]
  - Immune-mediated adverse reaction [Unknown]
